FAERS Safety Report 17942250 (Version 1)
Quarter: 2020Q2

REPORT INFORMATION
  Report Type: Report from Study
  Country: US (occurrence: US)
  Receive Date: 20200624
  Receipt Date: 20200624
  Transmission Date: 20200714
  Serious: Yes (Hospitalization)
  Sender: FDA-Public Use
  Company Number: NVSC2020US170966

PATIENT
  Age: 47 Year
  Sex: Female

DRUGS (1)
  1. TREPROSTINIL. [Suspect]
     Active Substance: TREPROSTINIL
     Indication: PULMONARY ARTERIAL HYPERTENSION
     Dosage: UNK UNK, CONT (5 NG/KG/MIN, CONTINUOUS)
     Route: 042
     Dates: start: 20200609

REACTIONS (5)
  - Malaise [Unknown]
  - Pulmonary oedema [Unknown]
  - Oxygen saturation decreased [Unknown]
  - Post procedural contusion [Unknown]
  - Chest pain [Unknown]

NARRATIVE: CASE EVENT DATE: 20200616
